FAERS Safety Report 6045522-5 (Version None)
Quarter: 2009Q1

REPORT INFORMATION
  Report Type: 
  Country: None (occurrence: None)
  Receive Date: 20090121
  Receipt Date: 20090114
  Transmission Date: 20090719
  Serious: Yes (Death, Life-Threatening, Congenital Anomaly)
  Sender: FDA-Public Use
  Company Number: B0447625A

PATIENT
  Sex: Male
  Weight: 2.2 kg

DRUGS (6)
  1. ZIDOVUDINE [Suspect]
     Indication: ANTIVIRAL PROPHYLAXIS
     Dosage: .5CC FOUR TIMES PER DAY
     Route: 048
     Dates: start: 20061002, end: 20061009
  2. ZIDOVUDINE [Suspect]
     Dates: start: 20060901
  3. NEVIRAPINE [Suspect]
     Indication: ANTIVIRAL PROPHYLAXIS
     Dosage: 200MG SINGLE DOSE
     Dates: start: 20061002
  4. LOPINAVIR AND RITONAVIR [Suspect]
     Indication: ANTIVIRAL PROPHYLAXIS
     Dates: start: 20061002
  5. DIDANOSINE [Suspect]
     Indication: ANTIVIRAL PROPHYLAXIS
     Dosage: 250MG PER DAY
     Dates: start: 20061002
  6. CEFIXIME CHEWABLE [Concomitant]

REACTIONS (13)
  - ABSCESS [None]
  - CARDIO-RESPIRATORY ARREST [None]
  - DIARRHOEA [None]
  - DUODENAL OBSTRUCTION [None]
  - DUODENAL STENOSIS [None]
  - HYPOTHYROIDISM [None]
  - PALLOR [None]
  - PANCREATIC DISORDER [None]
  - PNEUMONIA ASPIRATION [None]
  - PYREXIA [None]
  - TACHYCARDIA [None]
  - TACHYPNOEA [None]
  - TRISOMY 21 [None]
